FAERS Safety Report 16309419 (Version 2)
Quarter: 2019Q2

REPORT INFORMATION
  Report Type: Report from Study
  Country: GB (occurrence: GB)
  Receive Date: 20190514
  Receipt Date: 20190524
  Transmission Date: 20190711
  Serious: Yes (Hospitalization, Other)
  Sender: FDA-Public Use
  Company Number: GB-JNJFOC-20190440961

PATIENT
  Age: 82 Year
  Sex: Female

DRUGS (1)
  1. STELARA [Suspect]
     Active Substance: USTEKINUMAB
     Indication: PSORIASIS
     Route: 058
     Dates: start: 20151006

REACTIONS (6)
  - Insomnia [Unknown]
  - Urinary tract infection [Unknown]
  - Hip fracture [Unknown]
  - Psoriasis [Not Recovered/Not Resolved]
  - Memory impairment [Unknown]
  - Femur fracture [Unknown]

NARRATIVE: CASE EVENT DATE: 20190424
